FAERS Safety Report 9197560 (Version 2)
Quarter: 2015Q1

REPORT INFORMATION
  Report Type: Spontaneous
  Country: JP (occurrence: JP)
  Receive Date: 20130328
  Receipt Date: 20150303
  Transmission Date: 20150721
  Serious: Yes (Death, Other)
  Sender: FDA-Public Use
  Company Number: JP-GLAXOSMITHKLINE-B0877214A

PATIENT
  Age: 74 Year
  Sex: Female
  Weight: 40 kg

DRUGS (2)
  1. LAMOTRIGINE. [Suspect]
     Active Substance: LAMOTRIGINE
     Indication: EPILEPSY
     Dosage: 50 MG, 1D
     Route: 048
     Dates: start: 20120619, end: 20120808
  2. DEPAKENE [Concomitant]
     Active Substance: VALPROIC ACID
     Indication: EPILEPSY
     Dosage: 400 MG, 1D

REACTIONS (18)
  - Toxic epidermal necrolysis [Fatal]
  - Cytomegalovirus test positive [Unknown]
  - Pulmonary tuberculosis [Unknown]
  - Pyrexia [Unknown]
  - Herpes virus infection [Unknown]
  - Perivascular dermatitis [Unknown]
  - Odynophagia [Unknown]
  - Skin haemorrhage [Unknown]
  - Lip oedema [Unknown]
  - Electrolyte imbalance [Unknown]
  - Drug reaction with eosinophilia and systemic symptoms [Fatal]
  - Infection susceptibility increased [Unknown]
  - Brain abscess [Unknown]
  - Skin erosion [Unknown]
  - Generalised erythema [Unknown]
  - Rash [Unknown]
  - Skin exfoliation [Unknown]
  - Skin oedema [Unknown]

NARRATIVE: CASE EVENT DATE: 20120806
